FAERS Safety Report 9227169 (Version 1)
Quarter: 2013Q1

REPORT INFORMATION
  Report Type: Spontaneous
  Country: US (occurrence: None)
  Receive Date: 20120914
  Receipt Date: 20120914
  Transmission Date: 20140127
  Serious: Yes (Hospitalization)
  Sender: FDA-Public Use
  Company Number: JPI-P-019140

PATIENT
  Age: 40 Year
  Sex: Female
  Weight: 140.62 kg

DRUGS (7)
  1. XYREM (500 MILLIGRAM/MILLILITERS, SOLUTION) (SODIUM OXYBATE) [Suspect]
     Indication: NARCOLEPSY
     Route: 048
     Dates: start: 20090317
  2. WARFARIN SODIUM [Concomitant]
  3. SIMVASTATIN [Concomitant]
  4. LEVOTHYROXINE SODIUM [Concomitant]
  5. OMEPRAZOLE [Concomitant]
  6. ARMODAFINIL [Concomitant]
  7. METHYLPHENIDATE HYDROCHLORIDE [Concomitant]

REACTIONS (3)
  - Migraine [None]
  - Condition aggravated [None]
  - Hypotension [None]
